FAERS Safety Report 4523247-2 (Version None)
Quarter: 2004Q4

REPORT INFORMATION
  Report Type: 
  Country: None (occurrence: None)
  Receive Date: 20041203
  Receipt Date: 20041117
  Transmission Date: 20050328
  Serious: Yes (Hospitalization)
  Sender: FDA-Public Use
  Company Number: 600079

PATIENT
  Age: 37 Year
  Sex: Female

DRUGS (1)
  1. GAMMAGARD S/D [Suspect]
     Dosage: ONCE; INTRAVENOUS
     Route: 042
     Dates: start: 20010518, end: 20010518

REACTIONS (7)
  - CSF CELL COUNT INCREASED [None]
  - CSF GLUCOSE DECREASED [None]
  - CSF PROTEIN INCREASED [None]
  - DRUG EXPOSURE DURING PREGNANCY [None]
  - FATIGUE [None]
  - MENINGITIS ASEPTIC [None]
  - PURULENCE [None]
